FAERS Safety Report 4283642-6 (Version None)
Quarter: 2004Q1

REPORT INFORMATION
  Report Type: 
  Country: None (occurrence: None)
  Receive Date: 20040115
  Receipt Date: 20030729
  Transmission Date: 20041129
  Serious: Yes (Death)
  Sender: FDA-Public Use
  Company Number: NSADSS2003013216

PATIENT
  Age: 84 Year
  Sex: Female

DRUGS (1)
  1. DOXIL [Suspect]
     Indication: CERVIX CARCINOMA
     Dosage: 40 MG/M2, INTRAVENOUS DRIP
     Route: 041
     Dates: start: 20021031, end: 20021031

REACTIONS (1)
  - CONDITION AGGRAVATED [None]
